FAERS Safety Report 9849344 (Version 3)
Quarter: 2015Q2

REPORT INFORMATION
  Report Type: Report from Study
  Country: GR (occurrence: GR)
  Receive Date: 20140128
  Receipt Date: 20150520
  Transmission Date: 20150821
  Serious: Yes (Hospitalization)
  Sender: FDA-Public Use
  Company Number: GR-NOVOPROD-398781

PATIENT
  Sex: Female
  Weight: 2.64 kg

DRUGS (1)
  1. INSULATARD NPH HUMAN [Suspect]
     Active Substance: INSULIN HUMAN
     Indication: GESTATIONAL DIABETES
     Dosage: UNK
     Route: 064
     Dates: start: 20131025, end: 20131028

REACTIONS (3)
  - Umbilical cord haemorrhage [Unknown]
  - Foetal exposure during pregnancy [Unknown]
  - Thalassaemia [Unknown]

NARRATIVE: CASE EVENT DATE: 20131025
